FAERS Safety Report 12674903 (Version 5)
Quarter: 2017Q2

REPORT INFORMATION
  Report Type: Report from Study
  Country: BR (occurrence: BR)
  Receive Date: 20160822
  Receipt Date: 20170509
  Transmission Date: 20170830
  Serious: Yes (Other)
  Sender: FDA-Public Use
  Company Number: PHHY2016BR092674

PATIENT
  Age: 61 Year
  Sex: Female
  Weight: 66 kg

DRUGS (3)
  1. GILENYA [Suspect]
     Active Substance: FINGOLIMOD HYDROCHLORIDE
     Indication: MULTIPLE SCLEROSIS
     Dosage: 0.5 MG, QD
     Route: 048
     Dates: start: 20160310, end: 201606
  2. GILENYA [Suspect]
     Active Substance: FINGOLIMOD HYDROCHLORIDE
     Dosage: 0.5 MG, QD
     Route: 048
     Dates: start: 20160914, end: 20161206
  3. GILENYA [Suspect]
     Active Substance: FINGOLIMOD HYDROCHLORIDE
     Dosage: 0.5 MG, QD
     Route: 048
     Dates: start: 201703, end: 20170503

REACTIONS (13)
  - Muscular weakness [Unknown]
  - Limb discomfort [Unknown]
  - Gamma-glutamyltransferase increased [Not Recovered/Not Resolved]
  - Memory impairment [Unknown]
  - Confusional state [Unknown]
  - Multiple sclerosis [Not Recovered/Not Resolved]
  - Immunodeficiency [Recovered/Resolved]
  - Peripheral swelling [Unknown]
  - Pain [Unknown]
  - Dysstasia [Unknown]
  - Lymphocyte count decreased [Not Recovered/Not Resolved]
  - Alanine aminotransferase increased [Not Recovered/Not Resolved]
  - Weight increased [Recovering/Resolving]

NARRATIVE: CASE EVENT DATE: 201606
